FAERS Safety Report 25763917 (Version 1)
Quarter: 2025Q3

REPORT INFORMATION
  Report Type: Spontaneous
  Country: US (occurrence: US)
  Receive Date: 20250905
  Receipt Date: 20250905
  Transmission Date: 20251020
  Serious: No
  Sender: DOMPE FARMACEUTICI
  Company Number: US-FARMAPROD-202411-3910

PATIENT
  Sex: Male

DRUGS (9)
  1. OXERVATE [Suspect]
     Active Substance: CENEGERMIN-BKBJ
     Indication: Neurotrophic keratopathy
     Route: 047
     Dates: start: 20241029
  2. VITAMINS [Concomitant]
     Active Substance: VITAMINS
  3. VITAMIN B12 [Concomitant]
     Active Substance: CYANOCOBALAMIN
  4. FISH OIL OMEGA-3 [Concomitant]
  5. ASPIRIN [Concomitant]
     Active Substance: ASPIRIN
  6. METOPROLOL SUCCINATE [Concomitant]
     Active Substance: METOPROLOL SUCCINATE
  7. LOSARTAN POTASSIUM [Concomitant]
     Active Substance: LOSARTAN POTASSIUM
  8. SIMVASTATIN [Concomitant]
     Active Substance: SIMVASTATIN
  9. REFRESH OPTIVE MEGA-3 [Concomitant]
     Active Substance: CARBOXYMETHYLCELLULOSE SODIUM\GLYCERIN\POLYSORBATE 80

REACTIONS (2)
  - Eye pain [Unknown]
  - Eye irritation [Unknown]
